FAERS Safety Report 7739325-0 (Version None)
Quarter: 2011Q3

REPORT INFORMATION
  Report Type: 
  Country: None (occurrence: None)
  Receive Date: 20110909
  Receipt Date: 20110905
  Transmission Date: 20111222
  Serious: Yes (Hospitalization)
  Sender: FDA-Public Use
  Company Number: DE-ABBOTT-11P-062-0851477-00

PATIENT
  Sex: Female

DRUGS (4)
  1. DRUG FOR STOMACH PROTECTION [Concomitant]
     Indication: GASTRIC DISORDER
  2. DRUG FOR STOMACH PROTECTION [Concomitant]
     Indication: PROPHYLAXIS
  3. ANALGETIC DRUG [Concomitant]
     Indication: CROHN'S DISEASE
  4. HUMIRA [Suspect]
     Indication: CROHN'S DISEASE
     Route: 058
     Dates: start: 20110503, end: 20110809

REACTIONS (6)
  - ABDOMINAL PAIN [None]
  - LYMPHOMA [None]
  - CHILLS [None]
  - GROIN PAIN [None]
  - HYPOACUSIS [None]
  - BODY TEMPERATURE INCREASED [None]
